FAERS Safety Report 8438933-1 (Version None)
Quarter: 2012Q2

REPORT INFORMATION
  Report Type: 
  Country: None (occurrence: None)
  Receive Date: 20120615
  Receipt Date: 20120611
  Transmission Date: 20120825
  Serious: Yes (Death, Life-Threatening, Hospitalization, Other)
  Sender: FDA-Public Use
  Company Number: US-ELI_LILLY_AND_COMPANY-US201206003920

PATIENT
  Age: 65 Year
  Sex: Male

DRUGS (1)
  1. DROTRECOGIN ALFA (ACTIVATED) [Suspect]
     Indication: SEPSIS

REACTIONS (3)
  - DEATH [None]
  - MULTI-ORGAN FAILURE [None]
  - UROGENITAL HAEMORRHAGE [None]
